FAERS Safety Report 16803898 (Version 1)
Quarter: 2019Q3

REPORT INFORMATION
  Report Type: Spontaneous
  Country: SE (occurrence: SE)
  Receive Date: 20190913
  Receipt Date: 20190913
  Transmission Date: 20191005
  Serious: Yes (Other)
  Sender: FDA-Public Use
  Company Number: SE-TEVA-2019-SE-1105992

PATIENT
  Age: 47 Year
  Sex: Female

DRUGS (1)
  1. SUMATRIPTAN. [Suspect]
     Active Substance: SUMATRIPTAN
     Indication: MIGRAINE
     Dosage: 100, MILLIGRAM, IF NECESSARY
     Route: 048

REACTIONS (1)
  - Vascular pain [Recovered/Resolved]

NARRATIVE: CASE EVENT DATE: 201908
